FAERS Safety Report 6830489-X (Version None)
Quarter: 2010Q3

REPORT INFORMATION
  Report Type: 
  Country: None (occurrence: None)
  Receive Date: 20100712
  Receipt Date: 20100623
  Transmission Date: 20110219
  Serious: No
  Sender: FDA-Public Use
  Company Number: US-BIOGENIDEC-2010BI021357

PATIENT
  Age: 33 Year
  Sex: Female

DRUGS (1)
  1. AVONEX [Suspect]
     Indication: MULTIPLE SCLEROSIS
     Dates: start: 20060201, end: 20070101

REACTIONS (7)
  - HYPOAESTHESIA [None]
  - INCONTINENCE [None]
  - MULTIPLE SCLEROSIS RELAPSE [None]
  - OVARIAN GERM CELL TERATOMA BENIGN [None]
  - PAIN [None]
  - SENSORY LOSS [None]
  - URINARY TRACT INFECTION [None]
